FAERS Safety Report 8796074 (Version 1)
Quarter: 2012Q4

REPORT INFORMATION
  Report Type: 
  Country: DE (occurrence: DE)
  Receive Date: 20120919
  Receipt Date: 20120919
  Transmission Date: 20130627
  Serious: Yes (Other)
  Sender: FDA-Public Use
  Company Number: DE-UCBSA-065972

PATIENT
  Age: 90 Year
  Sex: Female
  Weight: 60 kg

DRUGS (4)
  1. KEPPRA [Suspect]
     Dosage: TOTAL AMOUNT: 500 MG (1 TABLET, MIX UP)
     Route: 048
     Dates: start: 20120910
  2. LIORESAL [Suspect]
     Dosage: UNKNOWN AMOUNT MIX UP
     Route: 048
     Dates: start: 20120910
  3. METOPROLOL [Suspect]
     Dosage: UNKNOWN AMOUNT MIX UP
     Route: 048
     Dates: start: 20120910
  4. SIMVASTATIN [Suspect]
     Dosage: UNKNOWN AMOUNT MIX UP
     Route: 048
     Dates: start: 20120910

REACTIONS (2)
  - Accidental exposure to product [Unknown]
  - Somnolence [Unknown]
